FAERS Safety Report 12331731 (Version 3)
Quarter: 2016Q4

REPORT INFORMATION
  Report Type: Spontaneous
  Country: US (occurrence: US)
  Receive Date: 20160504
  Receipt Date: 20161214
  Transmission Date: 20170207
  Serious: Yes (Other)
  Sender: FDA-Public Use
  Company Number: US-ROCHE-1637634

PATIENT
  Sex: Male

DRUGS (10)
  1. DIGOXIN. [Concomitant]
     Active Substance: DIGOXIN
  2. SILDENAFIL. [Concomitant]
     Active Substance: SILDENAFIL
  3. WARFARIN [Concomitant]
     Active Substance: WARFARIN
  4. TORSEMIDE. [Concomitant]
     Active Substance: TORSEMIDE
  5. CARDIZEM [Concomitant]
     Active Substance: DILTIAZEM HYDROCHLORIDE
  6. METHIMAZOLE. [Concomitant]
     Active Substance: METHIMAZOLE
  7. ALBUTEROL. [Concomitant]
     Active Substance: ALBUTEROL
  8. ESBRIET [Suspect]
     Active Substance: PIRFENIDONE
     Indication: IDIOPATHIC PULMONARY FIBROSIS
     Route: 048
     Dates: start: 20150318
  9. ADVAIR HFA [Concomitant]
     Active Substance: FLUTICASONE PROPIONATE\SALMETEROL XINAFOATE
  10. PREDNISONE. [Concomitant]
     Active Substance: PREDNISONE

REACTIONS (11)
  - Abdominal discomfort [Unknown]
  - Hyperchlorhydria [Unknown]
  - Weight decreased [Unknown]
  - Pulmonary hypertension [Unknown]
  - Dyspnoea [Unknown]
  - Drug dose omission [Unknown]
  - Memory impairment [Unknown]
  - Fatigue [Unknown]
  - Gastrooesophageal reflux disease [Unknown]
  - Respiratory tract infection [Unknown]
  - Inappropriate schedule of drug administration [Unknown]
